FAERS Safety Report 10447012 (Version 3)
Quarter: 2014Q4

REPORT INFORMATION
  Report Type: Spontaneous
  Country: FR (occurrence: None)
  Receive Date: 20140909
  Receipt Date: 20141028
  Transmission Date: 20150528
  Serious: Yes (Life-Threatening, Hospitalization, Other)
  Sender: FDA-Public Use
  Company Number: FR-016986

PATIENT
  Age: 35 Year
  Sex: Female
  Weight: 53 kg

DRUGS (1)
  1. PROPESS (PROPESS) 10 MG (NOT SPECIFIED) [Suspect]
     Active Substance: DINOPROSTONE
     Indication: LABOUR INDUCTION
     Route: 067
     Dates: start: 20140807, end: 20140807

REACTIONS (6)
  - Exposure during pregnancy [None]
  - Haemoglobin decreased [None]
  - Uterine rupture [None]
  - Uterine pain [None]
  - Effusion [None]
  - Scar [None]

NARRATIVE: CASE EVENT DATE: 20140807
